FAERS Safety Report 13333205 (Version 1)
Quarter: 2017Q1

REPORT INFORMATION
  Report Type: Spontaneous
  Country: GB (occurrence: GB)
  Receive Date: 20170314
  Receipt Date: 20170314
  Transmission Date: 20170428
  Serious: Yes (Other)
  Sender: FDA-Public Use
  Company Number: GB-GLAXOSMITHKLINE-GB2017034998

PATIENT
  Age: 37 Year
  Sex: Male
  Weight: 59 kg

DRUGS (2)
  1. MOMETASONE [Concomitant]
     Active Substance: MOMETASONE
     Dosage: 4 DF, QD,2 SPRAYS TO EACH NOSTRIL.
     Route: 045
     Dates: start: 20160308
  2. TERBINAFINE. [Suspect]
     Active Substance: TERBINAFINE
     Indication: PRODUCT USED FOR UNKNOWN INDICATION
     Dosage: UNK
     Route: 065
     Dates: start: 20170127

REACTIONS (1)
  - Cyanosis [Recovered/Resolved]

NARRATIVE: CASE EVENT DATE: 20170303
